FAERS Safety Report 23529696 (Version 2)
Quarter: 2024Q1

REPORT INFORMATION
  Report Type: Spontaneous
  Country: US (occurrence: US)
  Receive Date: 20240216
  Receipt Date: 20240229
  Transmission Date: 20240410
  Serious: No
  Sender: FDA-Public Use
  Company Number: US-SA-SAC20240208001254

PATIENT
  Age: 72 Year
  Sex: Male

DRUGS (1)
  1. DUPIXENT [Suspect]
     Active Substance: DUPILUMAB
     Indication: Asthma
     Dosage: UNK
     Route: 058
     Dates: start: 2023

REACTIONS (6)
  - Spinal stenosis [Recovered/Resolved]
  - Speech disorder [Unknown]
  - Oesophageal spasm [Recovered/Resolved]
  - Injection site pain [Recovered/Resolved]
  - Asthma [Unknown]
  - Drug ineffective [Unknown]
